FAERS Safety Report 5442364-6 (Version None)
Quarter: 2007Q3

REPORT INFORMATION
  Report Type: 
  Country: None (occurrence: None)
  Receive Date: 20070904
  Receipt Date: 20070706
  Transmission Date: 20080115
  Serious: Yes (Hospitalization)
  Sender: FDA-Public Use
  Company Number: US-PFIZER INC-2007049512

PATIENT
  Sex: Female
  Weight: 62.8 kg

DRUGS (17)
  1. SILDENAFIL (PAH) [Suspect]
     Indication: VASODILATION PROCEDURE
     Route: 048
  2. EPOPROSTENOL SODIUM [Suspect]
     Indication: PULMONARY HYPERTENSION
     Dosage: TEXT:30 NG/KG/MIN INTERVAL: CONTINUOUS-FREQ:TDD: 2548800 NG
     Route: 042
     Dates: start: 20031008
  3. LOPERAMIDE HCL [Concomitant]
     Dosage: TEXT:1-2MG DOSE-FREQ:PRN
     Route: 048
  4. AMILORIDE HYDROCHLORIDE [Concomitant]
     Route: 048
  5. NEURONTIN [Concomitant]
     Route: 048
  6. LASIX [Concomitant]
     Route: 048
  7. FOSAMAX [Concomitant]
     Route: 048
  8. CITRACAL [Concomitant]
     Route: 048
  9. MAGNESIUM OXIDE [Concomitant]
     Route: 048
  10. WARFARIN SODIUM [Concomitant]
     Route: 048
  11. ACETAMINOPHEN [Concomitant]
     Route: 048
  12. ZAROXOLYN [Concomitant]
     Route: 048
  13. OXYGEN [Concomitant]
     Route: 055
  14. POTASSIUM CHLORIDE [Concomitant]
     Route: 048
  15. ALL OTHER THERAPEUTIC PRODUCTS [Concomitant]
     Route: 048
     Dates: start: 20070616, end: 20070625
  16. LORCET-HD [Concomitant]
     Route: 048
     Dates: start: 20030805
  17. LEVOPHED [Concomitant]
     Dates: start: 20070617, end: 20070618

REACTIONS (1)
  - ABDOMINAL PAIN [None]
